FAERS Safety Report 17711854 (Version 1)
Quarter: 2020Q2

REPORT INFORMATION
  Report Type: Spontaneous
  Country: US (occurrence: US)
  Receive Date: 20200426
  Receipt Date: 20200426
  Transmission Date: 20200714
  Serious: No
  Sender: FDA-Public Use
  Company Number: None

PATIENT
  Age: 22 Year
  Sex: Female
  Weight: 69.75 kg

DRUGS (1)
  1. CARBAMAZEPINE EXTENDED RELEASE TABLETS USP 200MG [Suspect]
     Active Substance: CARBAMAZEPINE
     Indication: MANIA
     Route: 048

REACTIONS (1)
  - Altered pitch perception [None]

NARRATIVE: CASE EVENT DATE: 20200423
